FAERS Safety Report 5033669-1 (Version None)
Quarter: 2006Q2

REPORT INFORMATION
  Report Type: 
  Country: None (occurrence: None)
  Receive Date: 20060623
  Receipt Date: 20060505
  Transmission Date: 20061013
  Serious: Yes (Other)
  Sender: FDA-Public Use
  Company Number: ES-GLAXOSMITHKLINE-B0423413A

PATIENT
  Age: 51 Year
  Sex: Female

DRUGS (1)
  1. AUGMENTIN '125' [Suspect]
     Indication: GINGIVAL ABSCESS
     Route: 048
     Dates: start: 20060404, end: 20060405

REACTIONS (2)
  - ANGIONEUROTIC OEDEMA [None]
  - CHEILITIS [None]
